FAERS Safety Report 8585651 (Version 13)
Quarter: 2013Q2

REPORT INFORMATION
  Report Type: Spontaneous
  Country: US (occurrence: US)
  Receive Date: 20120530
  Receipt Date: 20130515
  Transmission Date: 20140414
  Serious: Yes (Hospitalization)
  Sender: FDA-Public Use
  Company Number: US-GLAXOSMITHKLINE-A0957829A

PATIENT
  Age: 46 Year
  Sex: Female
  Weight: 97.1 kg

DRUGS (17)
  1. FLOLAN [Suspect]
     Indication: PULMONARY ARTERIAL HYPERTENSION
     Dosage: 29NGKM CONTINUOUS
     Route: 042
     Dates: start: 19971201
  2. ATIVAN [Suspect]
     Indication: PRODUCT USED FOR UNKNOWN INDICATION
     Dosage: .5MG UNKNOWN
     Route: 065
  3. AVELOX [Suspect]
     Indication: PRODUCT USED FOR UNKNOWN INDICATION
     Route: 065
  4. TRACLEER [Concomitant]
     Indication: PULMONARY HYPERTENSION
     Dosage: 125MG TWICE PER DAY
     Route: 048
  5. ASPIRIN [Concomitant]
  6. ALBUTEROL [Concomitant]
  7. SYNTHROID [Concomitant]
  8. FERROUS SULFATE [Concomitant]
  9. SPIRONOLACTONE [Concomitant]
  10. LASIX [Concomitant]
  11. KDUR [Concomitant]
  12. LORTAB [Concomitant]
  13. LORAZEPAM [Concomitant]
  14. POTASSIUM [Concomitant]
  15. OXYGEN [Concomitant]
  16. ZITHROMAX [Concomitant]
  17. BACTRIM [Concomitant]

REACTIONS (22)
  - Device related infection [Unknown]
  - Proteus infection [Unknown]
  - Pneumonia [Unknown]
  - Infusion site infection [Unknown]
  - Hypotension [Unknown]
  - Dizziness [Unknown]
  - Cyst [Unknown]
  - Groin pain [Unknown]
  - Catheter site discharge [Unknown]
  - Furuncle [Unknown]
  - Palpitations [Unknown]
  - Drug interaction [Unknown]
  - Nasal congestion [Unknown]
  - Local swelling [Unknown]
  - Dyspnoea [Unknown]
  - Sinusitis [Unknown]
  - Gastroenteritis viral [Unknown]
  - Infection [Unknown]
  - Catheter site erythema [Unknown]
  - Catheter site swelling [Unknown]
  - Medical device complication [Recovered/Resolved]
  - Central venous catheterisation [Recovered/Resolved]
